FAERS Safety Report 7801415-1 (Version None)
Quarter: 2011Q4

REPORT INFORMATION
  Report Type: 
  Country: None (occurrence: None)
  Receive Date: 20111007
  Receipt Date: 20110930
  Transmission Date: 20120403
  Serious: Yes (Hospitalization)
  Sender: FDA-Public Use
  Company Number: US-B.I. PHARMACEUTICALS,INC./RIDGEFIELD-2011-BP-20494BP

PATIENT
  Sex: Female
  Weight: 53.52 kg

DRUGS (1)
  1. PRADAXA [Suspect]
     Indication: ATRIAL FIBRILLATION

REACTIONS (3)
  - GASTRIC ULCER HAEMORRHAGE [None]
  - MELAENA [None]
  - GASTRITIS HAEMORRHAGIC [None]
